FAERS Safety Report 24029389 (Version 1)
Quarter: 2024Q2

REPORT INFORMATION
  Report Type: Spontaneous
  Country: MY (occurrence: MY)
  Receive Date: 20240628
  Receipt Date: 20240628
  Transmission Date: 20240716
  Serious: Yes (Other)
  Sender: FDA-Public Use
  Company Number: MY-PFIZER INC-202400200284

PATIENT
  Age: 30 Year
  Sex: Female

DRUGS (1)
  1. SOLU-MEDROL [Suspect]
     Active Substance: METHYLPREDNISOLONE SODIUM SUCCINATE
     Indication: Systemic lupus erythematosus
     Dosage: 500 MG, DAILY
     Route: 042

REACTIONS (3)
  - Rash [Recovering/Resolving]
  - Dysphagia [Recovering/Resolving]
  - Ocular hyperaemia [Recovering/Resolving]
